FAERS Safety Report 7933189-8 (Version None)
Quarter: 2011Q4

REPORT INFORMATION
  Report Type: 
  Country: None (occurrence: None)
  Receive Date: 20111122
  Receipt Date: 20090515
  Transmission Date: 20120403
  Serious: Yes (Other)
  Sender: FDA-Public Use
  Company Number: US-ENDO PHARMACEUTICALS INC.-PRIM20110008

PATIENT
  Sex: Male

DRUGS (2)
  1. MYSOLINE [Concomitant]
     Indication: GRAND MAL CONVULSION
  2. PRIMIDONE [Suspect]
     Indication: GRAND MAL CONVULSION
     Dosage: UNKNOWN
     Route: 048
     Dates: start: 20080601, end: 20081001

REACTIONS (1)
  - GRAND MAL CONVULSION [None]
